FAERS Safety Report 4425423-6 (Version None)
Quarter: 2004Q3

REPORT INFORMATION
  Report Type: 
  Country: None (occurrence: None)
  Receive Date: 20040719
  Receipt Date: 20030617
  Transmission Date: 20050211
  Serious: Yes (Hospitalization)
  Sender: FDA-Public Use
  Company Number: 174509

PATIENT
  Age: 62 Year
  Sex: Female

DRUGS (2)
  1. AVONEX [Suspect]
     Indication: MULTIPLE SCLEROSIS
     Dosage: 30 MCG QW IM
     Route: 030
     Dates: start: 20001010
  2. AVONEX [Suspect]
     Indication: MULTIPLE SCLEROSIS

REACTIONS (15)
  - CONSTIPATION [None]
  - DEHYDRATION [None]
  - DIARRHOEA [None]
  - DIFFICULTY IN WALKING [None]
  - FATIGUE [None]
  - HEADACHE [None]
  - HIATUS HERNIA [None]
  - INFLUENZA LIKE ILLNESS [None]
  - INSOMNIA [None]
  - INTESTINAL MASS [None]
  - OESOPHAGEAL DISORDER [None]
  - PROCEDURAL SITE REACTION [None]
  - RECTOCELE [None]
  - URINARY TRACT INFECTION [None]
  - WEIGHT DECREASED [None]
